FAERS Safety Report 8979967 (Version 1)
Quarter: 2012Q4

REPORT INFORMATION
  Report Type: 
  Country: ZA (occurrence: ZA)
  Receive Date: 20121221
  Receipt Date: 20121221
  Transmission Date: 20130627
  Serious: Yes (Other)
  Sender: FDA-Public Use
  Company Number: ZA-JNJFOC-20121207710

PATIENT
  Age: 62 Year
  Sex: Male

DRUGS (2)
  1. NICORETTE 4 MG GUM [Suspect]
     Indication: EX-TOBACCO USER
     Route: 048
  2. NICORETTE [Suspect]
     Indication: EX-TOBACCO USER
     Dosage: 16-25 chewing gums
     Route: 048
     Dates: start: 1998

REACTIONS (9)
  - Nicotine dependence [Unknown]
  - Neuropathy peripheral [Unknown]
  - Intentional drug misuse [Unknown]
  - Overdose [Unknown]
  - Tinnitus [Unknown]
  - Insomnia [Unknown]
  - Nausea [Unknown]
  - Dizziness [Unknown]
  - Drug ineffective [Unknown]
